FAERS Safety Report 5710590-4 (Version None)
Quarter: 2008Q2

REPORT INFORMATION
  Report Type: 
  Country: None (occurrence: None)
  Receive Date: 20080415
  Receipt Date: 20080408
  Transmission Date: 20081010
  Serious: Yes (Other)
  Sender: FDA-Public Use
  Company Number: 2008BI005997

PATIENT
  Age: 51 Year
  Sex: Male

DRUGS (1)
  1. TYSABRI [Suspect]
     Indication: MULTIPLE SCLEROSIS
     Dosage: 300 MG, QM,  IV
     Route: 042
     Dates: start: 20071201

REACTIONS (2)
  - HEPATITIS B SURFACE ANTIGEN POSITIVE [None]
  - HEPATITIS C [None]
